FAERS Safety Report 4361916-8 (Version None)
Quarter: 2004Q2

REPORT INFORMATION
  Report Type: 
  Country: None (occurrence: None)
  Receive Date: 20040521
  Receipt Date: 20040126
  Transmission Date: 20050107
  Serious: Yes (Hospitalization)
  Sender: FDA-Public Use
  Company Number: US-GLAXOSMITHKLINE-A0495501A

PATIENT
  Age: 18 Year
  Sex: Female
  Weight: 50 kg

DRUGS (7)
  1. WELLBUTRIN [Suspect]
     Indication: DEPRESSION
     Dates: start: 20031204, end: 20031225
  2. ADVAIR DISKUS 100/50 [Concomitant]
  3. SINGULAIR [Concomitant]
  4. ALESSE [Concomitant]
  5. ZYRTEC [Concomitant]
  6. PULMICORT [Concomitant]
  7. PROVENTIL [Concomitant]

REACTIONS (3)
  - DISORIENTATION [None]
  - FATIGUE [None]
  - GRAND MAL CONVULSION [None]
